FAERS Safety Report 10606243 (Version 5)
Quarter: 2015Q2

REPORT INFORMATION
  Report Type: Spontaneous
  Country: US (occurrence: US)
  Receive Date: 20141125
  Receipt Date: 20150623
  Transmission Date: 20150821
  Serious: Yes (Hospitalization, Other)
  Sender: FDA-Public Use
  Company Number: US-UNITED THERAPEUTICS-UNT-2014-011184

PATIENT
  Age: 69 Year
  Sex: Female
  Weight: 58.5 kg

DRUGS (8)
  1. REMODULIN [Suspect]
     Active Substance: TREPROSTINIL
     Indication: PULMONARY HYPERTENSION
     Dosage: 0.0265 ?G/KG, CONTINUING
     Route: 041
     Dates: start: 20130125
  2. WARFARIN [Concomitant]
     Active Substance: WARFARIN
     Indication: PRODUCT USED FOR UNKNOWN INDICATION
  3. REMODULIN [Suspect]
     Active Substance: TREPROSTINIL
     Dosage: 0.0265 ?G/KG, CONTINUING
     Route: 041
     Dates: start: 20131003
  4. PRADAXA [Suspect]
     Active Substance: DABIGATRAN ETEXILATE MESYLATE
     Indication: PRODUCT USED FOR UNKNOWN INDICATION
     Dosage: UNK
     Dates: start: 20141115
  5. REMODULIN [Suspect]
     Active Substance: TREPROSTINIL
     Dosage: 0.0265 ?G/KG, CONTINUING
     Route: 041
     Dates: start: 20130322
  6. REMODULIN [Suspect]
     Active Substance: TREPROSTINIL
     Dosage: 0.0265 ?G/KG, CONTINUING
     Route: 041
     Dates: start: 20130125
  7. REMODULIN [Suspect]
     Active Substance: TREPROSTINIL
     Dosage: 0.0265 ?G/KG, CONTINUING
     Route: 041
     Dates: start: 20130224
  8. ADEMPAS [Concomitant]
     Active Substance: RIOCIGUAT
     Indication: PRODUCT USED FOR UNKNOWN INDICATION

REACTIONS (11)
  - Haemoptysis [Unknown]
  - Fatigue [Unknown]
  - Dyspnoea [Unknown]
  - Malaise [Unknown]
  - Urosepsis [Unknown]
  - Lung disorder [Unknown]
  - Confusional state [Unknown]
  - Gait disturbance [Unknown]
  - Pneumonia [Unknown]
  - Fluid retention [Unknown]
  - Hallucination [Unknown]

NARRATIVE: CASE EVENT DATE: 2014
